FAERS Safety Report 8950615 (Version 1)
Quarter: 2012Q4

REPORT INFORMATION
  Report Type: 
  Country: GB (occurrence: GB)
  Receive Date: 20121206
  Receipt Date: 20121206
  Transmission Date: 20130627
  Serious: Yes (Hospitalization, Disabling, Other)
  Sender: FDA-Public Use
  Company Number: GB-WATSON-2012-21573

PATIENT
  Age: 50 Year
  Sex: Female
  Weight: 75 kg

DRUGS (6)
  1. TRIMETHOPRIM [Suspect]
     Indication: PROPHYLAXIS URINARY TRACT INFECTION
     Dosage: 1 DF, bid, Indicated for a precatuion to a urine infection in relation to kidney stones
     Route: 048
     Dates: start: 20120828, end: 20120901
  2. FLUTICASONE PROPIONATE [Concomitant]
     Indication: PRODUCT USED FOR UNKNOWN INDICATION
     Dosage: UNK
     Route: 065
  3. ALVERINE [Concomitant]
     Indication: PRODUCT USED FOR UNKNOWN INDICATION
     Dosage: UNK
     Route: 065
  4. ETORICOXIB [Concomitant]
     Indication: PRODUCT USED FOR UNKNOWN INDICATION
     Dosage: UNK
     Route: 065
  5. TRANEXAMIC ACID [Concomitant]
     Indication: PRODUCT USED FOR UNKNOWN INDICATION
     Dosage: first day of period
     Route: 065
     Dates: start: 20120902
  6. MOVICOL                            /01625101/ [Concomitant]
     Indication: PRODUCT USED FOR UNKNOWN INDICATION
     Route: 065

REACTIONS (13)
  - Rash erythematous [Recovering/Resolving]
  - Pruritus [Unknown]
  - Medication error [Unknown]
  - Swelling [Unknown]
  - Hypoaesthesia oral [Unknown]
  - Oropharyngeal pain [Unknown]
  - Asthenia [Unknown]
  - Fatigue [Unknown]
  - Eye pain [Unknown]
  - Stevens-Johnson syndrome [Unknown]
  - Pyrexia [Unknown]
  - Hypotension [Unknown]
  - Skin exfoliation [Unknown]
